FAERS Safety Report 8436632-3 (Version None)
Quarter: 2012Q2

REPORT INFORMATION
  Report Type: 
  Country: None (occurrence: None)
  Receive Date: 20120323
  Receipt Date: 20110624
  Transmission Date: 20120825
  Serious: Yes (Other)
  Sender: FDA-Public Use
  Company Number: 163-21880-11063304

PATIENT
  Age: 81 Year
  Sex: Male
  Weight: 72.5755 kg

DRUGS (9)
  1. LASIX [Concomitant]
  2. FLEXERIL [Concomitant]
  3. REVLIMID [Suspect]
     Indication: MULTIPLE MYELOMA
     Dosage: 25 MG, 21/7, PO
     Route: 048
     Dates: start: 20110426
  4. ASPIRIN [Concomitant]
  5. SKELAXIN (METAXALONE) (UNKNOWN) [Concomitant]
  6. NORVASC [Concomitant]
  7. ARICEPT [Concomitant]
  8. NAMENDA (MEMANTINE HYDROCHLORIDE) (UNKNOWN) [Concomitant]
  9. LORTAB (VICODIN) (UNKNOWN) [Concomitant]

REACTIONS (1)
  - OEDEMA PERIPHERAL [None]
